FAERS Safety Report 18714274 (Version 2)
Quarter: 2021Q1

REPORT INFORMATION
  Report Type: Spontaneous
  Country: US (occurrence: US)
  Receive Date: 20210108
  Receipt Date: 20210205
  Transmission Date: 20210419
  Serious: No
  Sender: FDA-Public Use
  Company Number: US-NEUROCRINE BIOSCIENCES INC.-2020NBI04818

PATIENT
  Age: 66 Year
  Sex: Female
  Weight: 77.18 kg

DRUGS (2)
  1. INGREZZA [Suspect]
     Active Substance: VALBENAZINE
     Indication: TARDIVE DYSKINESIA
     Route: 048
     Dates: start: 20201230, end: 20210121
  2. INGREZZA [Suspect]
     Active Substance: VALBENAZINE
     Indication: TREMOR
     Route: 048
     Dates: start: 20201223, end: 20201229

REACTIONS (6)
  - Back pain [Not Recovered/Not Resolved]
  - Abdominal pain upper [Not Recovered/Not Resolved]
  - Dyspnoea [Unknown]
  - Myalgia [Unknown]
  - Drug ineffective [Unknown]
  - Malaise [Unknown]

NARRATIVE: CASE EVENT DATE: 202012
